FAERS Safety Report 7328473-5 (Version None)
Quarter: 2011Q1

REPORT INFORMATION
  Report Type: 
  Country: None (occurrence: None)
  Receive Date: 20110303
  Receipt Date: 20110223
  Transmission Date: 20110831
  Serious: Yes (Disabling, Other)
  Sender: FDA-Public Use
  Company Number: US-PFIZER INC-2009269325

PATIENT
  Sex: Female

DRUGS (1)
  1. CHANTIX [Suspect]
     Indication: SMOKING CESSATION THERAPY
     Dosage: 0.5 MG, 1X/DAY
     Dates: start: 20090501, end: 20090601

REACTIONS (6)
  - MOOD SWINGS [None]
  - DEPRESSION [None]
  - ANXIETY DISORDER [None]
  - HALLUCINATION, VISUAL [None]
  - PANIC ATTACK [None]
  - SUICIDAL IDEATION [None]
